FAERS Safety Report 13234115 (Version 1)
Quarter: 2017Q1

REPORT INFORMATION
  Report Type: Spontaneous
  Country: US (occurrence: US)
  Receive Date: 20170215
  Receipt Date: 20170215
  Transmission Date: 20170428
  Serious: No
  Sender: FDA-Public Use
  Company Number: None

PATIENT

DRUGS (1)
  1. VALPROIC ACID 250MG/5ML [Suspect]
     Active Substance: VALPROIC ACID

REACTIONS (2)
  - Transcription medication error [None]
  - Drug dispensing error [None]
